FAERS Safety Report 9777510 (Version 1)
Quarter: 2013Q4

REPORT INFORMATION
  Report Type: Spontaneous
  Country: MX (occurrence: MX)
  Receive Date: 20131222
  Receipt Date: 20131222
  Transmission Date: 20140711
  Serious: Yes (Other)
  Sender: FDA-Public Use
  Company Number: PHHY2013MX147524

PATIENT
  Age: 51 Year
  Sex: Female

DRUGS (2)
  1. ONBREZ [Suspect]
     Indication: CHRONIC OBSTRUCTIVE PULMONARY DISEASE
     Dosage: 150 UG, UNK
     Route: 055
     Dates: start: 201312
  2. MIFLONIDE [Suspect]
     Indication: ASTHMA
     Dosage: 400 UG, DAILY
     Route: 055
     Dates: start: 201312

REACTIONS (4)
  - Asthma [Recovered/Resolved]
  - Pharyngitis [Recovered/Resolved]
  - Aphasia [Recovered/Resolved]
  - Fatigue [Recovered/Resolved]
